FAERS Safety Report 6399894-2 (Version None)
Quarter: 2009Q4

REPORT INFORMATION
  Report Type: 
  Country: None (occurrence: None)
  Receive Date: 20091014
  Receipt Date: 20091001
  Transmission Date: 20100525
  Serious: Yes (Other)
  Sender: FDA-Public Use
  Company Number: BR-PFIZER INC-2009271553

PATIENT

DRUGS (1)
  1. DOSTINEX [Suspect]
     Indication: PROLACTINOMA
     Dosage: 0.5 MG, WEEKLY
     Route: 048
     Dates: start: 20010101, end: 20090901

REACTIONS (7)
  - ABDOMINAL PAIN UPPER [None]
  - CHEST PAIN [None]
  - COLD SWEAT [None]
  - HEADACHE [None]
  - NAUSEA [None]
  - SKIN BURNING SENSATION [None]
  - TACHYCARDIA [None]
